FAERS Safety Report 9192607 (Version 1)
Quarter: 2013Q1

REPORT INFORMATION
  Report Type: Spontaneous
  Country: US (occurrence: US)
  Receive Date: 20130327
  Receipt Date: 20130327
  Transmission Date: 20140127
  Serious: No
  Sender: FDA-Public Use
  Company Number: US-PFIZER INC-2013094983

PATIENT
  Sex: Female
  Weight: 45.35 kg

DRUGS (1)
  1. XANAX [Suspect]
     Dosage: UNK
     Dates: start: 2010, end: 2010

REACTIONS (1)
  - Drug hypersensitivity [Unknown]
